FAERS Safety Report 19183382 (Version 1)
Quarter: 2021Q2

REPORT INFORMATION
  Report Type: Spontaneous
  Country: GB (occurrence: GB)
  Receive Date: 20210427
  Receipt Date: 20210427
  Transmission Date: 20210717
  Serious: Yes (Other)
  Sender: FDA-Public Use
  Company Number: GB-ALKEM LABORATORIES LIMITED-GB-ALKEM-2021-02162

PATIENT
  Age: 35 Year
  Sex: Female
  Weight: 65 kg

DRUGS (1)
  1. CEFALEXIN [Suspect]
     Active Substance: CEPHALEXIN
     Indication: LOWER RESPIRATORY TRACT INFECTION
     Route: 048
     Dates: start: 20110401, end: 20110401

REACTIONS (4)
  - Hallucination [Unknown]
  - Derealisation [Unknown]
  - Psychotic disorder [Recovered/Resolved]
  - Depersonalisation/derealisation disorder [Unknown]

NARRATIVE: CASE EVENT DATE: 20110401
